FAERS Safety Report 6603394-1 (Version None)
Quarter: 2010Q1

REPORT INFORMATION
  Report Type: 
  Country: None (occurrence: None)
  Receive Date: 20100226
  Receipt Date: 20090401
  Transmission Date: 20100710
  Serious: Yes (Other)
  Sender: FDA-Public Use
  Company Number: A0776612A

PATIENT
  Age: 90 Year
  Sex: Female

DRUGS (2)
  1. VALTREX [Suspect]
     Dosage: 1G THREE TIMES PER DAY
     Route: 048
     Dates: start: 20080401, end: 20080401
  2. NO CONCURRENT MEDICATION [Concomitant]

REACTIONS (2)
  - NAUSEA [None]
  - VOMITING [None]
